FAERS Safety Report 17166769 (Version 1)
Quarter: 2019Q4

REPORT INFORMATION
  Report Type: Report from Study
  Country: US (occurrence: US)
  Receive Date: 20191217
  Receipt Date: 20191217
  Transmission Date: 20200122
  Serious: Yes (Other)
  Sender: FDA-Public Use
  Company Number: US-JAZZ-2019-US-014698

PATIENT
  Sex: Male

DRUGS (11)
  1. XYREM [Suspect]
     Active Substance: SODIUM OXYBATE
     Dosage: DOSE ADJUSTMENT
     Route: 048
     Dates: start: 201504, end: 201504
  2. OMEPRAZOLE. [Concomitant]
     Active Substance: OMEPRAZOLE
  3. CYCLOBENZAPRINE. [Concomitant]
     Active Substance: CYCLOBENZAPRINE
  4. IBUPROFEN. [Concomitant]
     Active Substance: IBUPROFEN
  5. IBUPROFEN. [Concomitant]
     Active Substance: IBUPROFEN
  6. XYREM [Suspect]
     Active Substance: SODIUM OXYBATE
     Indication: NARCOLEPSY
     Dosage: 2.25 G, BID
     Route: 048
     Dates: start: 201504, end: 201504
  7. DIAZEPAM. [Concomitant]
     Active Substance: DIAZEPAM
  8. XYREM [Suspect]
     Active Substance: SODIUM OXYBATE
     Dosage: 4.5 G, BID
     Route: 048
     Dates: start: 201504, end: 2019
  9. MOBIC [Concomitant]
     Active Substance: MELOXICAM
  10. MODAFINIL. [Concomitant]
     Active Substance: MODAFINIL
  11. LIDOCAINE. [Concomitant]
     Active Substance: LIDOCAINE

REACTIONS (6)
  - Sleep apnoea syndrome [Unknown]
  - Neck pain [Unknown]
  - Back pain [Unknown]
  - Road traffic accident [Unknown]
  - Gastrooesophageal reflux disease [Recovered/Resolved]
  - Bronchitis [Recovered/Resolved]
